FAERS Safety Report 25689579 (Version 1)
Quarter: 2025Q3

REPORT INFORMATION
  Report Type: Other
  Country: AR (occurrence: AR)
  Receive Date: 20250818
  Receipt Date: 20250818
  Transmission Date: 20251020
  Serious: Yes (Other)
  Sender: ALVOGEN
  Company Number: AR-ALVOGEN-2025098536

PATIENT
  Age: 10 Year
  Sex: Female

DRUGS (1)
  1. VORICONAZOLE [Suspect]
     Active Substance: VORICONAZOLE
     Indication: Bronchopulmonary aspergillosis
     Dates: start: 201705, end: 20220725

REACTIONS (3)
  - Neurotoxicity [Recovered/Resolved]
  - Peripheral motor neuropathy [Recovered/Resolved]
  - Peripheral sensory neuropathy [Recovered/Resolved]

NARRATIVE: CASE EVENT DATE: 20220705
